FAERS Safety Report 8877266 (Version 1)
Quarter: 2012Q4

REPORT INFORMATION
  Report Type: 
  Country: US (occurrence: US)
  Receive Date: 20121023
  Receipt Date: 20121023
  Transmission Date: 20130627
  Serious: No
  Sender: FDA-Public Use
  Company Number: US-AMGEN-USASP2012058612

PATIENT
  Age: 18 Year
  Sex: Female

DRUGS (2)
  1. ENBREL [Suspect]
     Indication: JUVENILE ARTHRITIS
     Dosage: 25 mg, 2 times/wk
     Route: 058
     Dates: start: 20110513, end: 20120601
  2. METHOTREXATE [Concomitant]
     Dosage: UNK
     Dates: start: 20110513, end: 20120601

REACTIONS (7)
  - Mycobacterium tuberculosis complex test positive [Recovered/Resolved]
  - Skin mass [Not Recovered/Not Resolved]
  - Pain in extremity [Not Recovered/Not Resolved]
  - Medial tibial stress syndrome [Recovered/Resolved]
  - Bone pain [Not Recovered/Not Resolved]
  - Fall [Recovered/Resolved]
  - Meniscus injury [Not Recovered/Not Resolved]
